FAERS Safety Report 17343023 (Version 1)
Quarter: 2020Q1

REPORT INFORMATION
  Report Type: Spontaneous
  Country: US (occurrence: US)
  Receive Date: 20200129
  Receipt Date: 20200129
  Transmission Date: 20200409
  Serious: No
  Sender: FDA-Public Use
  Company Number: US-ALLERGAN-1933791US

PATIENT
  Age: 50 Year
  Sex: Female

DRUGS (5)
  1. BOTOX [Suspect]
     Active Substance: ONABOTULINUMTOXINA
     Dosage: UNK
     Dates: start: 2018, end: 2018
  2. BOTOX [Suspect]
     Active Substance: ONABOTULINUMTOXINA
     Indication: MUSCLE SPASTICITY
     Dosage: UNK
     Dates: start: 20190812, end: 20190812
  3. BOTOX [Suspect]
     Active Substance: ONABOTULINUMTOXINA
     Indication: MUSCLE SPASTICITY
     Dosage: UNK
     Dates: start: 20190812, end: 20190812
  4. UNSPECIFIED MUSCLE RELAXERS [Concomitant]
     Indication: MUSCLE SPASMS
     Dosage: UNK
     Dates: start: 2018
  5. BOTOX [Suspect]
     Active Substance: ONABOTULINUMTOXINA
     Dosage: UNK
     Dates: start: 2018, end: 2018

REACTIONS (13)
  - Heart rate increased [Not Recovered/Not Resolved]
  - Drug ineffective [Unknown]
  - Orthostatic hypotension [Not Recovered/Not Resolved]
  - Diarrhoea [Not Recovered/Not Resolved]
  - Influenza like illness [Not Recovered/Not Resolved]
  - Wrong technique in product usage process [Unknown]
  - Pyrexia [Not Recovered/Not Resolved]
  - Pain [Not Recovered/Not Resolved]
  - Injection site irritation [Recovered/Resolved]
  - Vomiting [Not Recovered/Not Resolved]
  - Dehydration [Not Recovered/Not Resolved]
  - Off label use [Unknown]
  - Headache [Not Recovered/Not Resolved]

NARRATIVE: CASE EVENT DATE: 2018
